FAERS Safety Report 7964816-7 (Version None)
Quarter: 2011Q4

REPORT INFORMATION
  Report Type: 
  Country: None (occurrence: None)
  Receive Date: 20111208
  Receipt Date: 20111129
  Transmission Date: 20120403
  Serious: Yes (Hospitalization, Other)
  Sender: FDA-Public Use
  Company Number: PHHY2011IT100151

PATIENT
  Sex: Female

DRUGS (3)
  1. TASIGNA [Suspect]
     Dosage: 200 MG, TWICE A DAY
     Route: 048
     Dates: start: 20111012
  2. TASIGNA [Suspect]
     Route: 048
  3. TASIGNA [Suspect]
     Indication: CHRONIC MYELOID LEUKAEMIA
     Dosage: 600 MG/DAY
     Route: 048
     Dates: start: 20110727, end: 20110912

REACTIONS (3)
  - THROMBOCYTOPENIA [None]
  - METRORRHAGIA [None]
  - SPLENOMEGALY [None]
